FAERS Safety Report 11592139 (Version 2)
Quarter: 2015Q4

REPORT INFORMATION
  Report Type: Spontaneous
  Country: US (occurrence: US)
  Receive Date: 20151005
  Receipt Date: 20151124
  Transmission Date: 20160304
  Serious: No
  Sender: FDA-Public Use
  Company Number: US-PFIZER INC-2015331187

PATIENT
  Age: 64 Year
  Sex: Female

DRUGS (1)
  1. BOSULIF [Suspect]
     Active Substance: BOSUTINIB MONOHYDRATE
     Indication: CHRONIC MYELOID LEUKAEMIA
     Dosage: 500 MG, DAILY
     Route: 048
     Dates: start: 20150108

REACTIONS (1)
  - Anaemia [Unknown]
